FAERS Safety Report 6258981-X (Version None)
Quarter: 2009Q3

REPORT INFORMATION
  Report Type: 
  Country: None (occurrence: None)
  Receive Date: 20090707
  Receipt Date: 20090625
  Transmission Date: 20100115
  Serious: Yes (Hospitalization, Disabling)
  Sender: FDA-Public Use
  Company Number: PHHY2009JP25623

PATIENT
  Sex: Male
  Weight: 52 kg

DRUGS (4)
  1. DIOVAN T30230+TAB+HY [Suspect]
     Indication: HYPERTENSION
     Dosage: 160 MG, QD
     Route: 048
     Dates: start: 20080327, end: 20080416
  2. TAKEPRON [Concomitant]
     Dosage: 15 MG, UNK
     Route: 048
     Dates: start: 20080327
  3. PLAVIX [Concomitant]
     Dosage: 75 MG, UNK
     Route: 048
     Dates: start: 20080327
  4. MAGLAX [Concomitant]
     Dosage: 990 MG, UNK
     Route: 048
     Dates: start: 20080327

REACTIONS (2)
  - CAROTID ARTERY STENT INSERTION [None]
  - CEREBRAL INFARCTION [None]
